FAERS Safety Report 9022339 (Version 6)
Quarter: 2013Q4

REPORT INFORMATION
  Report Type: Report from Study
  Country: CA (occurrence: CA)
  Receive Date: 20130118
  Receipt Date: 20131226
  Transmission Date: 20140711
  Serious: No
  Sender: FDA-Public Use
  Company Number: PHHY2013CA004603

PATIENT
  Sex: Male

DRUGS (6)
  1. TASIGNA [Suspect]
     Indication: CHRONIC MYELOID LEUKAEMIA
     Dosage: 200 MG, BID
     Route: 048
     Dates: start: 201001
  2. TASIGNA [Suspect]
     Dosage: 400 MG, QD AT BEDTIME
     Route: 048
  3. LOSARTAN [Concomitant]
  4. TOLOXIN//DIGOXIN [Concomitant]
  5. VERAPAMIL [Concomitant]
  6. ALDACTONE [Concomitant]

REACTIONS (8)
  - Aphagia [Unknown]
  - Rash [Unknown]
  - Pruritus [Unknown]
  - Abdominal pain upper [Recovered/Resolved]
  - Fatigue [Unknown]
  - Weight decreased [Unknown]
  - Dyspepsia [Recovered/Resolved]
  - Decreased appetite [Unknown]
